FAERS Safety Report 6942829-1 (Version None)
Quarter: 2010Q3

REPORT INFORMATION
  Report Type: 
  Country: None (occurrence: None)
  Receive Date: 20100824
  Receipt Date: 20100824
  Transmission Date: 20110219
  Serious: No
  Sender: FDA-Public Use
  Company Number: None

PATIENT
  Age: 47 Year
  Sex: Male
  Weight: 153.3158 kg

DRUGS (2)
  1. LOSARTAN POTASSIUM [Suspect]
     Indication: HYPERTENSION
     Dosage: 50MG TABS 1 TAB TWICE/DAY MOUTH
     Route: 048
     Dates: start: 20100603
  2. COZAAR [Suspect]

REACTIONS (5)
  - DIZZINESS POSTURAL [None]
  - DYSPHONIA [None]
  - MALAISE [None]
  - PRODUCT SUBSTITUTION ISSUE [None]
  - SYNCOPE [None]
